FAERS Safety Report 9999054 (Version 1)
Quarter: 2014Q1

REPORT INFORMATION
  Report Type: Spontaneous
  Country: US (occurrence: None)
  Receive Date: 20140310
  Receipt Date: 20140310
  Transmission Date: 20141002
  Serious: Yes (Other)
  Sender: FDA-Public Use
  Company Number: 2014P1001818

PATIENT
  Age: 77 Year
  Sex: Female
  Weight: 84 kg

DRUGS (9)
  1. LEVOFLOXACIN [Suspect]
     Indication: DIVERTICULITIS
     Route: 042
  2. METRONIDAZOLE [Concomitant]
  3. ALLOPURINOL [Concomitant]
  4. DILTIAZEM [Concomitant]
  5. FAMOTIDINE [Concomitant]
  6. FUROSEMIDE [Concomitant]
  7. LEVOTHYROXINE [Concomitant]
  8. PAROXETINE [Concomitant]
  9. WARFARIN [Concomitant]

REACTIONS (5)
  - Dyskinesia [None]
  - Muscle twitching [None]
  - Dysarthria [None]
  - Muscle spasms [None]
  - Renal failure [None]
